FAERS Safety Report 12806806 (Version 1)
Quarter: 2016Q4

REPORT INFORMATION
  Report Type: Spontaneous
  Country: US (occurrence: US)
  Receive Date: 20161004
  Receipt Date: 20161004
  Transmission Date: 20170207
  Serious: No
  Sender: FDA-Public Use
  Company Number: US-JNJFOC-20160816397

PATIENT
  Age: 70 Year
  Sex: Male
  Weight: 72.58 kg

DRUGS (3)
  1. SUDAFED 24 HOUR [Suspect]
     Active Substance: PSEUDOEPHEDRINE HYDROCHLORIDE
     Indication: SINUS DISORDER
     Route: 048
  2. SUDAFED 24 HOUR [Suspect]
     Active Substance: PSEUDOEPHEDRINE HYDROCHLORIDE
     Indication: RHINORRHOEA
     Route: 048
  3. LIPITOR [Concomitant]
     Active Substance: ATORVASTATIN CALCIUM
     Indication: BLOOD CHOLESTEROL INCREASED
     Route: 065

REACTIONS (4)
  - Product use issue [Unknown]
  - Off label use [Unknown]
  - Therapeutic response unexpected [Unknown]
  - Product lot number issue [Unknown]
